FAERS Safety Report 4756515-X (Version None)
Quarter: 2005Q3

REPORT INFORMATION
  Report Type: 
  Country: None (occurrence: None)
  Receive Date: 20050830
  Receipt Date: 20050720
  Transmission Date: 20060218
  Serious: No
  Sender: FDA-Public Use
  Company Number: US-GLAXOSMITHKLINE-A0567034A

PATIENT
  Age: 74 Year
  Sex: Male

DRUGS (2)
  1. WELLBUTRIN XL [Suspect]
     Indication: DEPRESSION
     Dosage: 150MG PER DAY
     Route: 048
     Dates: start: 20050601, end: 20050701
  2. LISINOPRIL [Concomitant]

REACTIONS (2)
  - FEELING ABNORMAL [None]
  - POLLAKIURIA [None]
